FAERS Safety Report 4883109-8 (Version None)
Quarter: 2006Q1

REPORT INFORMATION
  Report Type: 
  Country: None (occurrence: None)
  Receive Date: 20060118
  Receipt Date: 20060111
  Transmission Date: 20060701
  Serious: Yes (Other)
  Sender: FDA-Public Use
  Company Number: JP-JNJFOC-20060102371

PATIENT
  Age: 56 Year
  Sex: Male

DRUGS (2)
  1. ITRIZOLE [Suspect]
     Indication: NAIL TINEA
     Route: 048
     Dates: start: 20051001, end: 20060107
  2. INTERFERON ALFA [Concomitant]
     Dates: start: 20050527, end: 20060107

REACTIONS (1)
  - WHITE BLOOD CELL COUNT DECREASED [None]
